FAERS Safety Report 17590319 (Version 1)
Quarter: 2020Q1

REPORT INFORMATION
  Report Type: Spontaneous
  Country: FR (occurrence: FR)
  Receive Date: 20200327
  Receipt Date: 20200327
  Transmission Date: 20200409
  Serious: Yes (Hospitalization)
  Sender: FDA-Public Use
  Company Number: FR-SUN PHARMACEUTICAL INDUSTRIES LTD-2020RR-240267

PATIENT
  Age: 67 Year
  Sex: Female
  Weight: 69 kg

DRUGS (4)
  1. IXPRIM [Suspect]
     Active Substance: ACETAMINOPHEN\TRAMADOL HYDROCHLORIDE
     Indication: PAIN
     Dosage: 2 DOSAGE FORM
     Route: 048
     Dates: start: 20200111
  2. TRAMADOL. [Suspect]
     Active Substance: TRAMADOL
     Dosage: LIBERATION IMMEDIATE
     Route: 048
     Dates: start: 20191220
  3. PARACETAMOL [Suspect]
     Active Substance: ACETAMINOPHEN
     Indication: PAIN
     Dosage: 1 A 2 COMPRIMES PAR JOUR
     Route: 048
     Dates: start: 201911
  4. TRAMADOL. [Suspect]
     Active Substance: TRAMADOL
     Indication: PAIN
     Dosage: LIBERATION PROLONGEE
     Route: 048
     Dates: start: 20200106, end: 20200106

REACTIONS (2)
  - Abdominal pain upper [Recovering/Resolving]
  - Obstructive pancreatitis [Recovered/Resolved]

NARRATIVE: CASE EVENT DATE: 20200106
